FAERS Safety Report 8587498-2 (Version None)
Quarter: 2012Q3

REPORT INFORMATION
  Report Type: 
  Country: None (occurrence: None)
  Receive Date: 20120810
  Receipt Date: 20120809
  Transmission Date: 20120928
  Serious: Yes (Hospitalization, Other)
  Sender: FDA-Public Use
  Company Number: US-PFIZER INC-2012152345

PATIENT
  Age: 48 Year
  Sex: Female
  Weight: 54.422 kg

DRUGS (4)
  1. NEURONTIN [Suspect]
     Indication: BURNING SENSATION
     Dosage: 800 MG, 2X/DAY
     Route: 048
  2. NOVOLOG [Concomitant]
     Indication: DIABETES MELLITUS
     Dosage: UNK, AS NEEDED
  3. NEURONTIN [Suspect]
     Indication: NERVOUS SYSTEM DISORDER
  4. LEVEMIR [Concomitant]
     Indication: DIABETES MELLITUS
     Dosage: 42 IU, DAILY

REACTIONS (4)
  - ROAD TRAFFIC ACCIDENT [None]
  - UPPER LIMB FRACTURE [None]
  - FEMUR FRACTURE [None]
  - GASTRIC HAEMORRHAGE [None]
